FAERS Safety Report 13307833 (Version 2)
Quarter: 2017Q2

REPORT INFORMATION
  Report Type: Report from Study
  Country: US (occurrence: US)
  Receive Date: 20170308
  Receipt Date: 20170619
  Transmission Date: 20170830
  Serious: Yes (Hospitalization)
  Sender: FDA-Public Use
  Company Number: US-GILEAD-2017-0256924

PATIENT
  Age: 54 Year
  Sex: Male

DRUGS (12)
  1. CLINDAMYCIN. [Concomitant]
     Active Substance: CLINDAMYCIN
  2. AMBRISENTAN [Suspect]
     Active Substance: AMBRISENTAN
     Indication: PULMONARY HYPERTENSION
     Dosage: 10 MG, QD
     Route: 065
     Dates: start: 20130329
  3. METHYLPRED [Concomitant]
     Active Substance: METHYLPREDNISOLONE
  4. LEVOFLOXACIN. [Concomitant]
     Active Substance: LEVOFLOXACIN
  5. OXYCODONE [Concomitant]
     Active Substance: OXYCODONE
  6. ACYCLOVIR                          /00587301/ [Concomitant]
     Active Substance: ACYCLOVIR
  7. IBUPROFEN. [Concomitant]
     Active Substance: IBUPROFEN
  8. GABAPENTIN. [Concomitant]
     Active Substance: GABAPENTIN
  9. OXCARBAZEPINE. [Concomitant]
     Active Substance: OXCARBAZEPINE
  10. LORAZEPAM. [Concomitant]
     Active Substance: LORAZEPAM
  11. MEMANTINE. [Concomitant]
     Active Substance: MEMANTINE
  12. FENTANYL. [Concomitant]
     Active Substance: FENTANYL

REACTIONS (6)
  - Malaise [Unknown]
  - Herpes zoster [Unknown]
  - Insurance issue [Unknown]
  - Dyspnoea [Unknown]
  - Chest pain [Unknown]
  - Product use issue [Unknown]
